FAERS Safety Report 15714326 (Version 2)
Quarter: 2019Q1

REPORT INFORMATION
  Report Type: Spontaneous
  Country: US (occurrence: US)
  Receive Date: 20181212
  Receipt Date: 20190301
  Transmission Date: 20190417
  Serious: Yes (Other)
  Sender: FDA-Public Use
  Company Number: US-SA-2018SA334658

PATIENT
  Age: 61 Year
  Sex: Female
  Weight: 109 kg

DRUGS (10)
  1. MINOXIDIL. [Concomitant]
     Active Substance: MINOXIDIL
  2. NEOSAR [Concomitant]
     Active Substance: CYCLOPHOSPHAMIDE
  3. CYCLOPHOSPHAMIDE. [Concomitant]
     Active Substance: CYCLOPHOSPHAMIDE
  4. FOLIC ACID. [Concomitant]
     Active Substance: FOLIC ACID
  5. METFORMIN [Concomitant]
     Active Substance: METFORMIN HYDROCHLORIDE
  6. NEULASTA [Concomitant]
     Active Substance: PEGFILGRASTIM
  7. TAXOTERE [Suspect]
     Active Substance: DOCETAXEL
     Indication: BREAST CANCER FEMALE
     Dosage: 174.8 MG, UNK, EVERY 2.5 WEEKS
     Route: 042
     Dates: start: 20100317, end: 20100317
  8. TAXOTERE [Suspect]
     Active Substance: DOCETAXEL
     Dosage: 174.8 MG, UNK, EVERY 2.5 WEEKS
     Route: 042
     Dates: start: 20100630, end: 20100630
  9. LEXAPRO [Concomitant]
     Active Substance: ESCITALOPRAM OXALATE
  10. ARMOUR THYROID [Concomitant]
     Active Substance: THYROID, PORCINE

REACTIONS (5)
  - Anxiety [Unknown]
  - Alopecia [Recovering/Resolving]
  - Pain [Unknown]
  - Impaired quality of life [Unknown]
  - Emotional distress [Unknown]

NARRATIVE: CASE EVENT DATE: 20101230
